FAERS Safety Report 13694450 (Version 1)
Quarter: 2017Q2

REPORT INFORMATION
  Report Type: Spontaneous
  Country: US (occurrence: US)
  Receive Date: 20170627
  Receipt Date: 20170627
  Transmission Date: 20170830
  Serious: No
  Sender: FDA-Public Use
  Company Number: US-PURDUE-USA-2016-0132244

PATIENT
  Sex: Female
  Weight: 49.43 kg

DRUGS (3)
  1. DRONABINOL CAPSULES [Suspect]
     Active Substance: DRONABINOL
     Indication: PAIN
     Dosage: 5 MG, UNK
     Route: 048
     Dates: start: 20160629
  2. DRONABINOL CAPSULES [Suspect]
     Active Substance: DRONABINOL
     Indication: GLAUCOMA
  3. DIAZEPAM. [Concomitant]
     Active Substance: DIAZEPAM
     Indication: PRODUCT USED FOR UNKNOWN INDICATION
     Route: 048

REACTIONS (1)
  - Drug ineffective [Unknown]
